FAERS Safety Report 4821157-4 (Version None)
Quarter: 2005Q4

REPORT INFORMATION
  Report Type: 
  Country: None (occurrence: None)
  Receive Date: 20051102
  Receipt Date: 20051018
  Transmission Date: 20060501
  Serious: Yes (Other)
  Sender: FDA-Public Use
  Company Number: USA0510111402

PATIENT
  Sex: Male

DRUGS (3)
  1. CYMBALTA [Suspect]
     Indication: PAIN
     Dosage: 30 MG DAY
  2. WELLBUTRIN [Concomitant]
  3. LAMICTAL [Concomitant]

REACTIONS (1)
  - CONVULSION [None]
